FAERS Safety Report 4294095-6 (Version None)
Quarter: 2004Q1

REPORT INFORMATION
  Report Type: 
  Country: None (occurrence: None)
  Receive Date: 20040212
  Receipt Date: 20040212
  Transmission Date: 20041129
  Serious: No
  Sender: FDA-Public Use
  Company Number: None

PATIENT
  Age: 72 Year
  Sex: Male

DRUGS (12)
  1. ENTACAPONE - COMTAN 200 MG NOVARTIS [Suspect]
     Indication: PARKINSON'S DISEASE
     Dosage: 200 MG  4 TIMES ORAL
     Route: 048
     Dates: start: 20030123, end: 20030506
  2. VITAMIN E [Concomitant]
  3. VITAMIN C [Concomitant]
  4. ASPIRIN [Concomitant]
  5. M.V.I. [Concomitant]
  6. LANSOPRAZOLE [Concomitant]
  7. MINOCYCLINE HCL [Concomitant]
  8. MIRALAX [Concomitant]
  9. PAROXETINE [Concomitant]
  10. DONEPEZIL [Concomitant]
  11. CELECOXIB [Concomitant]
  12. GLUCOSAMINE [Concomitant]

REACTIONS (2)
  - BACK PAIN [None]
  - DIARRHOEA [None]
